FAERS Safety Report 5723450-X (Version None)
Quarter: 2008Q2

REPORT INFORMATION
  Report Type: 
  Country: None (occurrence: None)
  Receive Date: 20080430
  Receipt Date: 20080423
  Transmission Date: 20081010
  Serious: Yes (Death, Hospitalization)
  Sender: FDA-Public Use
  Company Number: US-SOLVAY-00208000980

PATIENT
  Age: 30007 Day
  Sex: Female
  Weight: 41 kg

DRUGS (13)
  1. COUMADIN [Concomitant]
     Indication: CARDIAC FAILURE CONGESTIVE
     Dosage: DAILY DOSE:  UNKNOWN
     Route: 048
     Dates: end: 20070501
  2. CREON [Suspect]
     Indication: COELIAC DISEASE
     Dosage: DAILY DOSE: 12 DOSAGE FORM
     Route: 048
     Dates: start: 19890101, end: 20070610
  3. CREON [Suspect]
     Dosage: DAILY DOSE: 12 DOSAGE FORM
     Route: 050
     Dates: start: 20070601, end: 20070601
  4. SYNTHROID [Concomitant]
     Indication: HYPOTHYROIDISM
     Dosage: DAILY DOSE:  UNKNOWN
     Route: 048
     Dates: end: 20070101
  5. UNASYN [Suspect]
     Indication: CHOLECYSTITIS INFECTIVE
     Dosage: DAILY DOSE:  UNKNOWN
     Route: 042
     Dates: start: 20070601, end: 20070601
  6. VITAMIN D [Concomitant]
     Indication: DRUG USE FOR UNKNOWN INDICATION
     Dosage: DAILY DOSE:  UNKNOWN
     Route: 048
     Dates: end: 20070101
  7. VITAMIN E [Concomitant]
     Indication: DRUG USE FOR UNKNOWN INDICATION
     Dosage: DAILY DOSE:  UNKNOWN
     Route: 048
     Dates: end: 20070601
  8. DIOVAN [Concomitant]
     Indication: DRUG USE FOR UNKNOWN INDICATION
     Dosage: DAILY DOSE:  UNKNOWN
     Route: 048
     Dates: end: 20070101
  9. PERCOCET [Concomitant]
     Indication: DRUG USE FOR UNKNOWN INDICATION
     Dosage: DAILY DOSE:  UNKNOWN
     Route: 048
     Dates: end: 20070101
  10. THADEZONE [Concomitant]
     Indication: DRUG USE FOR UNKNOWN INDICATION
     Dosage: DAILY DOSE:  UNKNOWN
     Route: 048
     Dates: end: 20070101
  11. ATIVAN [Concomitant]
     Indication: DRUG USE FOR UNKNOWN INDICATION
     Dosage: DAILY DOSE:  UNKNOWN
     Route: 048
     Dates: end: 20070101
  12. PROCRIT [Concomitant]
     Indication: ANAEMIA
     Dosage: DAILY DOSE:  UNKNOWN
     Route: 065
     Dates: end: 20070101
  13. CARNATION INSTANT BREAKFAST [Concomitant]
     Indication: DRUG USE FOR UNKNOWN INDICATION
     Dosage: DAILY DOSE:  UNKNOWN
     Route: 048
     Dates: end: 20070101

REACTIONS (7)
  - CARDIAC ARREST [None]
  - CARDIAC FAILURE CONGESTIVE [None]
  - GALLBLADDER DISORDER [None]
  - HYDROCEPHALUS [None]
  - MALNUTRITION [None]
  - MYOCARDIAL INFARCTION [None]
  - OEDEMA [None]
